FAERS Safety Report 7823723-0 (Version None)
Quarter: 2011Q4

REPORT INFORMATION
  Report Type: 
  Country: None (occurrence: None)
  Receive Date: 20111019
  Receipt Date: 20111017
  Transmission Date: 20120403
  Serious: No
  Sender: FDA-Public Use
  Company Number: US-PFIZER INC-2011249143

PATIENT
  Sex: Female
  Weight: 77 kg

DRUGS (4)
  1. SPIRONOLACTONE [Concomitant]
     Dosage: UNK
  2. TOPROL-XL [Concomitant]
     Dosage: 200MG
  3. NEXIUM [Concomitant]
     Dosage: UNK
  4. NEURONTIN [Suspect]
     Indication: NEUROPATHY PERIPHERAL
     Dosage: 1200 MG, 3X/DAY
     Route: 048
     Dates: start: 20090101

REACTIONS (1)
  - HAIR TEXTURE ABNORMAL [None]
